FAERS Safety Report 5309293-X (Version None)
Quarter: 2007Q2

REPORT INFORMATION
  Report Type: 
  Country: None (occurrence: None)
  Receive Date: 20070426
  Receipt Date: 20070426
  Transmission Date: 20071010
  Serious: Yes (Other)
  Sender: FDA-Public Use
  Company Number: None

PATIENT
  Sex: Male
  Weight: 71.7 kg

DRUGS (8)
  1. CARIMUNE [Suspect]
     Indication: MYASTHENIA GRAVIS
     Dosage: 75 GRAMS EVERY 28 DAYS IV
     Route: 042
     Dates: start: 20050106, end: 20070412
  2. CARIMUNE [Suspect]
  3. CELLCEPT [Concomitant]
  4. TYLENOL [Concomitant]
  5. BENADRYL [Concomitant]
  6. PROSTIGMIN [Concomitant]
  7. IBUPROFEN [Concomitant]
  8. SOLU-CORTEF [Concomitant]

REACTIONS (5)
  - CHEST PAIN [None]
  - COUGH [None]
  - DYSPNOEA [None]
  - INFUSION RELATED REACTION [None]
  - NAUSEA [None]
